FAERS Safety Report 18617617 (Version 2)
Quarter: 2020Q4

REPORT INFORMATION
  Report Type: Spontaneous
  Country: CN (occurrence: CN)
  Receive Date: 20201215
  Receipt Date: 20201223
  Transmission Date: 20210114
  Serious: Yes (Hospitalization, Other)
  Sender: FDA-Public Use
  Company Number: CN-GLAXOSMITHKLINE-CN2020APC242585

PATIENT
  Age: 15 Year
  Sex: Male
  Weight: 62 kg

DRUGS (6)
  1. VALPROATE SODIUM. [Suspect]
     Active Substance: VALPROATE SODIUM
     Indication: BIPOLAR DISORDER
     Dosage: 500 MG, BID, TABLETS
     Dates: end: 20201129
  2. METOPROLOL. [Suspect]
     Active Substance: METOPROLOL
     Indication: BIPOLAR DISORDER
     Dosage: 23.75 MG, QD
     Dates: end: 20201129
  3. LAMOTRIGINE. [Suspect]
     Active Substance: LAMOTRIGINE
     Indication: BIPOLAR DISORDER
     Dosage: 25 MG, BID
     Route: 048
     Dates: start: 20201009, end: 20201129
  4. LAMOTRIGINE. [Suspect]
     Active Substance: LAMOTRIGINE
     Indication: DEPRESSION
  5. BUSPIRONE [Suspect]
     Active Substance: BUSPIRONE HYDROCHLORIDE
     Indication: BIPOLAR DISORDER
     Dosage: 5 DF (TABLET), TID
     Dates: end: 20201129
  6. QUETIAPINE FUMARATE. [Suspect]
     Active Substance: QUETIAPINE FUMARATE
     Indication: BIPOLAR DISORDER
     Dosage: 0.05 G, QD
     Dates: end: 20201129

REACTIONS (13)
  - Flushing [Recovering/Resolving]
  - Oral mucosa erosion [Recovering/Resolving]
  - Mouth ulceration [Recovering/Resolving]
  - Erythema multiforme [Recovering/Resolving]
  - Rash maculo-papular [Recovering/Resolving]
  - Conjunctival hyperaemia [Recovering/Resolving]
  - Genital erosion [Recovering/Resolving]
  - Herpes virus infection [Recovering/Resolving]
  - Papule [Recovering/Resolving]
  - Erythema [Recovering/Resolving]
  - Rash [Recovering/Resolving]
  - Condition aggravated [Recovering/Resolving]
  - Lip swelling [Recovering/Resolving]

NARRATIVE: CASE EVENT DATE: 20201027
